FAERS Safety Report 8743277 (Version 3)
Quarter: 2012Q4

REPORT INFORMATION
  Report Type: 
  Country: AU (occurrence: AU)
  Receive Date: 20120824
  Receipt Date: 20121019
  Transmission Date: 20130627
  Serious: Yes (Death, Hospitalization, Other)
  Sender: FDA-Public Use
  Company Number: AU-B.I. PHARMACEUTICALS,INC./RIDGEFIELD-2012-AU-01472AU

PATIENT
  Age: 67 Year
  Sex: Male

DRUGS (5)
  1. PRADAXA [Suspect]
     Indication: ATRIAL FIBRILLATION
     Dosage: 300 mg
     Dates: start: 20110819, end: 20120812
  2. BICOR [Concomitant]
     Dosage: 10 mg
  3. RAMIPRIL [Concomitant]
     Dosage: 5 mg
  4. FRUSEMIDE [Concomitant]
     Dosage: 40 mg
  5. LIPITOR [Concomitant]
     Dosage: 40 mg

REACTIONS (7)
  - Ischaemic stroke [Fatal]
  - Brain oedema [Fatal]
  - Tonic convulsion [Unknown]
  - Coma scale abnormal [Unknown]
  - Hemiplegia [Unknown]
  - VIIth nerve paralysis [Unknown]
  - Hemiparesis [Unknown]
